FAERS Safety Report 20171581 (Version 1)
Quarter: 2021Q4

REPORT INFORMATION
  Report Type: Report from Study
  Country: FR (occurrence: FR)
  Receive Date: 20211210
  Receipt Date: 20211210
  Transmission Date: 20220303
  Serious: Yes (Hospitalization, Other)
  Sender: FDA-Public Use
  Company Number: FR-PFIZER INC-202101723585

PATIENT
  Weight: 16.2 kg

DRUGS (16)
  1. GEMTUZUMAB OZOGAMICIN [Suspect]
     Active Substance: GEMTUZUMAB OZOGAMICIN
     Indication: Acute myeloid leukaemia
     Dosage: 1.9 MG
     Route: 042
     Dates: start: 20211030, end: 20211105
  2. CYTARABINE [Suspect]
     Active Substance: CYTARABINE
     Indication: Acute myeloid leukaemia
     Dosage: 100 MG, 1X/DAY
     Route: 042
     Dates: start: 20211027, end: 20211106
  3. MITOXANTRONE [Suspect]
     Active Substance: MITOXANTRONE HYDROCHLORIDE
     Indication: Acute myeloid leukaemia
     Dosage: 12 MG/M2, 1X/DAY
     Route: 042
     Dates: start: 20211027, end: 20211030
  4. BACTRIM [Concomitant]
     Active Substance: SULFAMETHOXAZOLE\TRIMETHOPRIM
     Indication: Antifungal prophylaxis
     Dosage: 350 MG
     Dates: start: 20211027
  5. DEXAMETHASONE [Concomitant]
     Active Substance: DEXAMETHASONE
     Indication: Prophylaxis of nausea and vomiting
     Dosage: 5 MG, 2X/DAY
     Dates: start: 20211108, end: 20211120
  6. RACECADOTRIL [Concomitant]
     Active Substance: RACECADOTRIL
     Indication: Diarrhoea
     Dosage: 30 MG, 2X/DAY
     Dates: start: 20211117, end: 20211117
  7. ACETAMINOPHEN [Concomitant]
     Active Substance: ACETAMINOPHEN
     Indication: Pain
     Dosage: 230 MG, 2X/DAY
     Dates: start: 20211106
  8. ALIZAPRIDE [Concomitant]
     Active Substance: ALIZAPRIDE
     Indication: Nausea
     Dosage: 16 MG, 3X/DAY
     Dates: start: 20211027, end: 20211119
  9. ONDANSETRON [Concomitant]
     Active Substance: ONDANSETRON
     Indication: Nausea
     Dosage: 4.0 MG, 2X/DAY
     Dates: start: 20211027
  10. AMPHOTERICIN B [Concomitant]
     Active Substance: AMPHOTERICIN B
     Indication: Fungal infection
     Dosage: 42 MG, 1X/DAY
     Dates: start: 20211112
  11. ESOMEPRAZOLE [Concomitant]
     Active Substance: ESOMEPRAZOLE
     Indication: Gastrointestinal disorder prophylaxis
     Dosage: 10 MG, 1X/DAY
     Dates: start: 20211108, end: 20211121
  12. ESOMEPRAZOLE [Concomitant]
     Active Substance: ESOMEPRAZOLE
     Dosage: 80 MG, 1X/DAY
     Dates: start: 20211122, end: 20211124
  13. DEXAMETHASONE SODIUM PHOSPHATE\NEOMYCIN SULFATE [Concomitant]
     Active Substance: DEXAMETHASONE SODIUM PHOSPHATE\NEOMYCIN SULFATE
     Indication: Prophylaxis
     Dosage: COLLVRE 1 DROP/EYE X4/DAY
     Route: 047
     Dates: start: 20211027, end: 20211110
  14. POVIDON [Concomitant]
     Indication: Prophylaxis
     Dosage: COLLVRE 1 DROP/EYE X4/DAY
     Route: 047
     Dates: start: 20211027, end: 20211110
  15. VITA 1 [Concomitant]
     Indication: Prophylaxis
     Dosage: 1 APPLICATION/DAY
     Dates: start: 20211027, end: 20211110
  16. VANCOMYCIN [Concomitant]
     Active Substance: VANCOMYCIN
     Indication: Antibiotic prophylaxis
     Dosage: 780 MG, 1X/DAY
     Dates: start: 20211118

REACTIONS (6)
  - Haematemesis [Recovered/Resolved]
  - Abdominal pain [Recovered/Resolved]
  - Aplasia [Recovered/Resolved]
  - Anaemia [Recovered/Resolved]
  - Platelet count decreased [Recovered/Resolved]
  - Neutrophil count decreased [Recovered/Resolved]

NARRATIVE: CASE EVENT DATE: 20211122
